FAERS Safety Report 16839587 (Version 1)
Quarter: 2019Q4

REPORT INFORMATION
  Report Type: Spontaneous
  Country: US (occurrence: US)
  Receive Date: 20190922
  Receipt Date: 20190922
  Transmission Date: 20200122
  Serious: Yes (Other)
  Sender: FDA-Public Use
  Company Number: None

PATIENT
  Age: 16 Year
  Sex: Male
  Weight: 76.5 kg

DRUGS (5)
  1. BUPROPION XL [Concomitant]
     Active Substance: BUPROPION
  2. MULTIVITAMIN [Concomitant]
     Active Substance: VITAMINS
  3. LEXAPRO [Suspect]
     Active Substance: ESCITALOPRAM OXALATE
     Indication: DEPRESSION
     Dates: start: 20180901, end: 20190501
  4. LEXAPRO [Suspect]
     Active Substance: ESCITALOPRAM OXALATE
     Indication: ANXIETY
     Dates: start: 20180901, end: 20190501
  5. THERMOTAB [Concomitant]

REACTIONS (3)
  - Presyncope [None]
  - Therapy cessation [None]
  - Syncope [None]

NARRATIVE: CASE EVENT DATE: 20181101
